FAERS Safety Report 5952836-3 (Version None)
Quarter: 2008Q4

REPORT INFORMATION
  Report Type: 
  Country: None (occurrence: None)
  Receive Date: 20081114
  Receipt Date: 20081111
  Transmission Date: 20090506
  Serious: Yes (Other)
  Sender: FDA-Public Use
  Company Number: DE-WYE-G02550508

PATIENT
  Sex: Female

DRUGS (1)
  1. TREVILOR RETARD [Suspect]
     Route: 048

REACTIONS (2)
  - ADRENOCORTICAL CARCINOMA [None]
  - CATECHOLAMINES URINE INCREASED [None]
